FAERS Safety Report 9637657 (Version 2)
Quarter: 2013Q4

REPORT INFORMATION
  Report Type: Report from Study
  Country: US (occurrence: US)
  Receive Date: 20131022
  Receipt Date: 20131022
  Transmission Date: 20140711
  Serious: Yes (Other)
  Sender: FDA-Public Use
  Company Number: US-SANOFI-AVENTIS-2013SA056685

PATIENT
  Age: 63 Year
  Sex: Female
  Weight: 68 kg

DRUGS (12)
  1. AUBAGIO [Suspect]
     Indication: MULTIPLE SCLEROSIS
     Route: 048
     Dates: start: 20130506
  2. AUBAGIO [Suspect]
     Indication: MULTIPLE SCLEROSIS
     Route: 048
     Dates: start: 20130506
  3. CARDIZEM [Concomitant]
     Indication: BLOOD PRESSURE
     Dosage: 2 YEAR AGO
     Route: 065
  4. HYDROCHLOROTHIAZIDE [Concomitant]
     Indication: BLOOD PRESSURE
     Dosage: 1 YEAR AGO
     Route: 065
  5. ALL OTHER THERAPEUTIC PRODUCTS [Concomitant]
     Indication: MULTIPLE SCLEROSIS
     Dosage: 2 YEARS AGO
     Route: 065
  6. MELOXICAM [Concomitant]
     Indication: BACK PAIN
     Dosage: 2 YEARS AGO
     Route: 065
  7. ECOTRIN [Concomitant]
     Indication: ANEURYSM
     Dosage: 4 YEARS AGO
     Route: 065
  8. ZONEGRAN [Concomitant]
     Indication: MULTIPLE SCLEROSIS
     Dosage: 6 YEARS AGO
     Route: 065
  9. AMPYRA [Concomitant]
     Indication: MULTIPLE SCLEROSIS
     Dosage: 2 YEARS AGO
     Route: 065
  10. SKELAXIN [Concomitant]
     Indication: MUSCLE RELAXANT THERAPY
     Dosage: 2 YEARS AGO
     Route: 065
  11. BACLOFEN [Concomitant]
     Indication: MULTIPLE SCLEROSIS
     Route: 065
  12. DOXEPIN [Concomitant]
     Indication: MULTIPLE SCLEROSIS
     Dosage: 4 YEARS AGO
     Route: 065

REACTIONS (4)
  - Intracranial aneurysm [Unknown]
  - Hypoaesthesia [Not Recovered/Not Resolved]
  - Paraesthesia [Not Recovered/Not Resolved]
  - Alopecia [Not Recovered/Not Resolved]
